FAERS Safety Report 9063845 (Version 3)
Quarter: 2013Q1

REPORT INFORMATION
  Report Type: Report from Study
  Country: JP (occurrence: JP)
  Receive Date: 20130202
  Receipt Date: 20130307
  Transmission Date: 20140127
  Serious: Yes (Other)
  Sender: FDA-Public Use
  Company Number: PHHY2012JP045148

PATIENT
  Age: 58 Year
  Sex: Male

DRUGS (30)
  1. AFINITOR [Suspect]
     Indication: METASTATIC RENAL CELL CARCINOMA
     Dosage: 10 MG DAILY
     Route: 048
     Dates: start: 20100527, end: 20100610
  2. AFINITOR [Suspect]
     Dosage: 5 MG DAILY
     Route: 048
     Dates: start: 20100622
  3. AFINITOR [Suspect]
     Dosage: 10 MG DAILY
     Route: 048
  4. AFINITOR [Suspect]
     Dosage: 5 MG DAILY
     Route: 048
  5. INTERFERON ALFA [Concomitant]
     Indication: METASTATIC RENAL CELL CARCINOMA
     Dosage: 3000000 IU, UNK
     Dates: start: 20080730, end: 20081021
  6. TECELEUKIN [Concomitant]
     Indication: METASTATIC RENAL CELL CARCINOMA
     Dosage: 1400000 IU
     Dates: start: 20090728, end: 20100426
  7. SUNITINIB MALATE [Concomitant]
     Indication: METASTATIC RENAL CELL CARCINOMA
     Dosage: 50 MG
     Route: 048
     Dates: start: 20081024, end: 20090327
  8. SORAFENIB TOSILATE [Concomitant]
     Indication: METASTATIC RENAL CELL CARCINOMA
     Dosage: 400 MG, UNK
     Route: 048
     Dates: start: 20091205, end: 20100426
  9. CELECOX [Concomitant]
     Dosage: 200 MG/DAY
     Route: 048
     Dates: start: 20100527
  10. CELECOX [Concomitant]
     Dosage: 200 MG/DAY
     Route: 048
  11. CELECOX [Concomitant]
     Dosage: 200 MG/DAY
     Route: 048
  12. MAGNESIUM OXIDE [Concomitant]
     Indication: CONSTIPATION
     Dosage: 1.5 MG
     Route: 048
     Dates: start: 20100527, end: 20100901
  13. GASTER D [Concomitant]
     Indication: GASTRIC ULCER
     Dosage: 20 MG
     Route: 048
     Dates: start: 20100527
  14. GASTER D [Concomitant]
     Dosage: 20 MG
  15. GASTER D [Concomitant]
     Dosage: 20 MG
     Route: 048
  16. AMLODIN [Concomitant]
     Dosage: 5 MG,
     Route: 048
     Dates: start: 20100527, end: 20100901
  17. MICARDIS [Concomitant]
     Indication: HYPERTENSION
     Dosage: 20 MG
     Route: 048
     Dates: start: 20100527
  18. MICARDIS [Concomitant]
     Dosage: 20 MG
     Route: 048
  19. LAXOBERON [Concomitant]
     Indication: CONSTIPATION
     Dosage: 10 MG
     Dates: start: 20100527, end: 20100901
  20. OXYCONTIN [Concomitant]
     Indication: CANCER PAIN
     Dosage: 40 MG, UNK
     Route: 048
     Dates: start: 20100527
  21. OXYCONTIN [Concomitant]
     Dosage: 20 MG, UNK
     Route: 048
  22. OXYCONTIN [Concomitant]
     Dosage: 20 MG, UNK
     Route: 048
  23. OXYCONTIN [Concomitant]
     Dosage: 40 MG, UNK
     Route: 048
  24. OXYCONTIN [Concomitant]
     Dosage: 30 MG, UNK
     Route: 048
  25. OXYCONTIN [Concomitant]
     Dosage: 30 MG, UNK
     Route: 048
  26. OPSO [Concomitant]
     Indication: CANCER PAIN
     Dosage: 5 MG
     Route: 048
  27. OPSO [Concomitant]
     Dosage: 5 MG
     Route: 048
  28. THYRADIN [Concomitant]
     Indication: THYROID CANCER
     Dosage: 50 UG
     Dates: start: 20101006
  29. THYRADIN [Concomitant]
     Dosage: 50 UG
     Route: 048
  30. THYRADIN [Concomitant]
     Dosage: 50 UG
     Route: 048

REACTIONS (6)
  - Blood uric acid increased [Unknown]
  - Blood albumin decreased [Unknown]
  - Haemoglobin decreased [Unknown]
  - C-reactive protein increased [Unknown]
  - Lymphocyte count decreased [Unknown]
  - Interstitial lung disease [Unknown]
